FAERS Safety Report 14174506 (Version 2)
Quarter: 2017Q4

REPORT INFORMATION
  Report Type: Report from Study
  Country: ES (occurrence: ES)
  Receive Date: 20171109
  Receipt Date: 20171228
  Transmission Date: 20180321
  Serious: Yes (Other)
  Sender: FDA-Public Use
  Company Number: ES-JNJFOC-20171105084

PATIENT

DRUGS (3)
  1. LURBINECTEDIN [Suspect]
     Active Substance: LURBINECTEDIN
     Indication: SMALL CELL LUNG CANCER RECURRENT
     Dosage: ON DAY 1
     Route: 042
  2. DOXORUBICIN HYDROCHLORIDE. [Suspect]
     Active Substance: DOXORUBICIN HYDROCHLORIDE
     Indication: SMALL CELL LUNG CANCER RECURRENT
     Route: 065
  3. LURBINECTEDIN [Suspect]
     Active Substance: LURBINECTEDIN
     Indication: SMALL CELL LUNG CANCER RECURRENT
     Dosage: OVER 1 H ON DAY 1
     Route: 042

REACTIONS (34)
  - Alanine aminotransferase increased [Unknown]
  - Mucosal inflammation [Unknown]
  - Blood alkaline phosphatase increased [Unknown]
  - Blood creatinine increased [Unknown]
  - Hypokalaemia [Unknown]
  - Leukopenia [Unknown]
  - Hypomagnesaemia [Unknown]
  - Fatigue [Unknown]
  - Dry mouth [Unknown]
  - Myalgia [Unknown]
  - Pyrexia [Unknown]
  - Somnolence [Unknown]
  - Off label use [Unknown]
  - Thrombocytopenia [Unknown]
  - Conjunctivitis [Unknown]
  - Diarrhoea [Unknown]
  - Dry skin [Unknown]
  - Neutropenic infection [Unknown]
  - Febrile neutropenia [Unknown]
  - Decreased appetite [Unknown]
  - Nail disorder [Unknown]
  - Product use in unapproved indication [Unknown]
  - Pneumonia [Unknown]
  - Neutropenia [Unknown]
  - Aspartate aminotransferase increased [Unknown]
  - Blood bilirubin increased [Unknown]
  - Anaemia [Unknown]
  - Alopecia [Unknown]
  - Constipation [Unknown]
  - Dizziness [Unknown]
  - Nausea [Unknown]
  - Vomiting [Unknown]
  - Oesophageal candidiasis [Unknown]
  - Dysgeusia [Unknown]
